FAERS Safety Report 5334564-0 (Version None)
Quarter: 2007Q2

REPORT INFORMATION
  Report Type: 
  Country: None (occurrence: None)
  Receive Date: 20070525
  Receipt Date: 20070521
  Transmission Date: 20071010
  Serious: Yes (Hospitalization)
  Sender: FDA-Public Use
  Company Number: DE-BAYER-200710600BVD

PATIENT
  Age: 66 Year
  Sex: Female
  Weight: 53 kg

DRUGS (5)
  1. SORAFENIB [Suspect]
     Indication: HEPATIC NEOPLASM MALIGNANT
     Dosage: TOTAL DAILY DOSE: 800 MG
     Route: 048
     Dates: start: 20060302
  2. PANTOZOL [Concomitant]
     Route: 065
     Dates: start: 20070501
  3. RAMIPRIL [Concomitant]
     Route: 065
     Dates: start: 20050320
  4. PRAVASTATIN SODIUM [Concomitant]
     Route: 065
     Dates: start: 20050920
  5. NORVASC [Concomitant]
     Route: 065
     Dates: start: 20060301

REACTIONS (1)
  - GASTRIC ULCER [None]
